FAERS Safety Report 15453472 (Version 2)
Quarter: 2018Q4

REPORT INFORMATION
  Report Type: Spontaneous
  Country: US (occurrence: US)
  Receive Date: 20181001
  Receipt Date: 20181030
  Transmission Date: 20190204
  Serious: Yes (Other)
  Sender: FDA-Public Use
  Company Number: US-SA-2018SA124196

PATIENT
  Age: 73 Year
  Sex: Female

DRUGS (1)
  1. LANTUS SOLOSTAR [Suspect]
     Active Substance: INSULIN GLARGINE
     Indication: TYPE 2 DIABETES MELLITUS
     Dosage: 14 DF,QD
     Route: 051
     Dates: start: 2006

REACTIONS (5)
  - Visual impairment [Unknown]
  - Transient ischaemic attack [Unknown]
  - Product dose omission [Unknown]
  - Device operational issue [Unknown]
  - Cataract [Unknown]

NARRATIVE: CASE EVENT DATE: 201809
